FAERS Safety Report 9451844 (Version 1)
Quarter: 2013Q3

REPORT INFORMATION
  Report Type: Spontaneous
  Country: GB (occurrence: GB)
  Receive Date: 20130812
  Receipt Date: 20130812
  Transmission Date: 20140515
  Serious: Yes (Disabling, Other)
  Sender: FDA-Public Use
  Company Number: GB-009507513-1308GBR002811

PATIENT
  Age: 67 Year
  Sex: Male
  Weight: 65 kg

DRUGS (9)
  1. SIMVASTATIN [Suspect]
     Route: 048
  2. ADCAL (CALCIUM CARBONATE) [Concomitant]
     Dosage: UNK
     Dates: start: 20130606
  3. AMITRIPTYLINE HYDROCHLORIDE [Concomitant]
     Dosage: UNK
     Dates: start: 20130327
  4. AMLODIPINE [Concomitant]
     Dosage: UNK
     Dates: start: 20130528, end: 20130625
  5. CIALIS [Concomitant]
     Dosage: UNK
     Dates: start: 20130606
  6. IBUPROFEN [Concomitant]
     Dosage: UNK
     Dates: start: 20130627, end: 20130711
  7. LATANOPROST [Concomitant]
     Dosage: UNK
     Dates: start: 20130313
  8. ACETAMINOPHEN [Concomitant]
     Dosage: UNK
     Dates: start: 20130628
  9. TRANSVASIN (BENZOCAINE (+) ETHYL NICOTINATE (+) HEXYL NICOTINATE (+) T [Concomitant]
     Dosage: UNK
     Dates: start: 20130628, end: 20130708

REACTIONS (3)
  - Rhabdomyolysis [Recovered/Resolved]
  - Pain in extremity [Recovered/Resolved]
  - Muscular weakness [Recovered/Resolved]
